FAERS Safety Report 4289140-8 (Version None)
Quarter: 2004Q1

REPORT INFORMATION
  Report Type: 
  Country: None (occurrence: None)
  Receive Date: 20040206
  Receipt Date: 20040126
  Transmission Date: 20041129
  Serious: Yes (Hospitalization, Other)
  Sender: FDA-Public Use
  Company Number: EMADSS2003004284

PATIENT
  Age: 26 Year
  Sex: Male

DRUGS (4)
  1. RISPERDAL [Suspect]
     Indication: PARANOIA
     Dosage: 4 MG, ORAL
     Route: 048
     Dates: start: 20020801, end: 20030501
  2. RISPERDAL [Suspect]
     Indication: SCHIZOPHRENIA
     Dosage: 4 MG, ORAL
     Route: 048
     Dates: start: 20020801, end: 20030501
  3. LYOGEN (FLUPHENAZINE) INJECTION [Concomitant]
  4. CIPRAMIL (CITALOPRAM HYDROBROMIDE) [Concomitant]

REACTIONS (5)
  - GENERAL NUTRITION DISORDER [None]
  - HEPATIC CIRRHOSIS [None]
  - HEPATIC FIBROSIS [None]
  - HEPATIC STEATOSIS [None]
  - TREATMENT NONCOMPLIANCE [None]
